FAERS Safety Report 7551535-4 (Version None)
Quarter: 2011Q2

REPORT INFORMATION
  Report Type: 
  Country: None (occurrence: None)
  Receive Date: 20110616
  Receipt Date: 20110603
  Transmission Date: 20111010
  Serious: Yes (Other)
  Sender: FDA-Public Use
  Company Number: PHHY2011JP50463

PATIENT
  Age: 69 Year
  Sex: Male

DRUGS (2)
  1. LANSOPRAZOLE [Concomitant]
     Dosage: UNK
     Route: 048
  2. DICLOFENAC SODIUM [Suspect]
     Dosage: UNK
     Route: 048

REACTIONS (1)
  - COLITIS COLLAGENOUS [None]
